FAERS Safety Report 14254411 (Version 1)
Quarter: 2017Q4

REPORT INFORMATION
  Report Type: Spontaneous
  Country: JP (occurrence: JP)
  Receive Date: 20171205
  Receipt Date: 20171205
  Transmission Date: 20180321
  Serious: Yes (Hospitalization, Other)
  Sender: FDA-Public Use
  Company Number: JP-CELGENEUS-JPN-20171003101

PATIENT
  Age: 39 Year
  Sex: Male
  Weight: 56 kg

DRUGS (12)
  1. BORTEZOMIB [Concomitant]
     Active Substance: BORTEZOMIB
     Indication: PLASMA CELL MYELOMA
     Route: 065
     Dates: start: 20170804, end: 20170817
  2. IXAZOMIB [Concomitant]
     Active Substance: IXAZOMIB
     Indication: PLASMA CELL MYELOMA
     Route: 065
     Dates: start: 20170828, end: 20170911
  3. REVLIMID [Suspect]
     Active Substance: LENALIDOMIDE
     Indication: PLASMA CELL MYELOMA
     Route: 048
     Dates: start: 20170804, end: 20170817
  4. REVLIMID [Suspect]
     Active Substance: LENALIDOMIDE
     Route: 048
     Dates: start: 20170828, end: 20170911
  5. LENADEX [Suspect]
     Active Substance: DEXAMETHASONE ACETATE
     Indication: PLASMA CELL MYELOMA
     Route: 048
     Dates: start: 20170804, end: 20170817
  6. LANSOPRAZOLE. [Concomitant]
     Active Substance: LANSOPRAZOLE
     Indication: PROPHYLAXIS AGAINST GASTROINTESTINAL ULCER
     Dosage: 15 MILLIGRAM
     Route: 048
     Dates: start: 20170805
  7. LENADEX [Suspect]
     Active Substance: DEXAMETHASONE ACETATE
     Dosage: 20 MILLIGRAM
     Route: 048
     Dates: start: 20171005, end: 20171005
  8. VALACICLOVIR [Concomitant]
     Active Substance: VALACYCLOVIR HYDROCHLORIDE
     Indication: INFECTION PROPHYLAXIS
     Dosage: 500 MILLIGRAM
     Route: 048
     Dates: start: 20171005
  9. POMALYST [Suspect]
     Active Substance: POMALIDOMIDE
     Indication: PLASMA CELL MYELOMA
     Dosage: 4 MILLIGRAM
     Route: 048
     Dates: start: 20171005, end: 20171006
  10. LENADEX [Suspect]
     Active Substance: DEXAMETHASONE ACETATE
     Route: 048
     Dates: start: 20170828, end: 20170911
  11. BAYASPIRIN [Concomitant]
     Active Substance: ASPIRIN
     Indication: THROMBOSIS PROPHYLAXIS
     Dosage: 100 MILLIGRAM
     Route: 048
     Dates: start: 20170825
  12. ITRIZOLE [Concomitant]
     Active Substance: ITRACONAZOLE
     Indication: INFECTION PROPHYLAXIS
     Dosage: 20 MILLILITER
     Route: 048
     Dates: start: 20171005

REACTIONS (19)
  - Hyperuricaemia [Unknown]
  - Haemoglobin decreased [Unknown]
  - Diarrhoea [Unknown]
  - Haemorrhoids [Unknown]
  - Osteoporosis [Unknown]
  - Pneumonia [Unknown]
  - Cholecystitis [Unknown]
  - Rash generalised [Unknown]
  - Drug reaction with eosinophilia and systemic symptoms [Unknown]
  - Lymphocyte count decreased [Unknown]
  - Ascites [Unknown]
  - Sinus node dysfunction [Unknown]
  - Cytomegalovirus infection [Unknown]
  - Condition aggravated [Not Recovered/Not Resolved]
  - Blood pressure decreased [Unknown]
  - Respiratory failure [Recovered/Resolved]
  - White blood cell count decreased [Unknown]
  - Blood urea increased [Unknown]
  - Blood alkaline phosphatase increased [Unknown]

NARRATIVE: CASE EVENT DATE: 2017
